FAERS Safety Report 7876344-8 (Version None)
Quarter: 2011Q4

REPORT INFORMATION
  Report Type: 
  Country: None (occurrence: None)
  Receive Date: 20111031
  Receipt Date: 20111026
  Transmission Date: 20120403
  Serious: Yes (Hospitalization, Disabling, Other)
  Sender: FDA-Public Use
  Company Number: US-MERCK-1007USA01783

PATIENT
  Age: 50 Year
  Sex: Female

DRUGS (4)
  1. FOSAMAX PLUS D [Suspect]
     Indication: OSTEOPENIA
     Route: 048
     Dates: start: 20060819, end: 20080414
  2. FOSAMAX [Suspect]
     Indication: OSTEOPENIA
     Route: 048
     Dates: start: 20051130, end: 20060718
  3. FOSAMAX [Suspect]
     Route: 048
     Dates: start: 20000101, end: 20050101
  4. FOSAMAX [Suspect]
     Route: 048
     Dates: start: 20080515, end: 20091230

REACTIONS (14)
  - FEMUR FRACTURE [None]
  - OSTEOPOROSIS [None]
  - HYPERTENSION [None]
  - BREAST CANCER [None]
  - ADVERSE EVENT [None]
  - INSOMNIA [None]
  - NEPHROLITHIASIS [None]
  - TOOTH DISORDER [None]
  - INFECTION [None]
  - STRESS FRACTURE [None]
  - SKIN WRINKLING [None]
  - DENTAL IMPLANTATION [None]
  - BONE DISORDER [None]
  - LOW TURNOVER OSTEOPATHY [None]
